FAERS Safety Report 4543496-7 (Version None)
Quarter: 2004Q4

REPORT INFORMATION
  Report Type: 
  Country: None (occurrence: None)
  Receive Date: 20041229
  Receipt Date: 20041229
  Transmission Date: 20050328
  Serious: Yes (Hospitalization)
  Sender: FDA-Public Use
  Company Number: None

PATIENT
  Age: 8 Year
  Sex: Male

DRUGS (5)
  1. SEREVENT [Suspect]
     Indication: ASTHMA
     Dosage: 2 PUFFS  2 XS DAILY
     Dates: start: 20010406, end: 20041227
  2. SINGULAIR [Concomitant]
  3. ALBUTEROL INHALER/NEBULIZER [Concomitant]
  4. ZYRTEC [Concomitant]
  5. HYDROXAZINE [Concomitant]

REACTIONS (5)
  - ASTHMA [None]
  - COMA [None]
  - LOSS OF CONSCIOUSNESS [None]
  - PULSE ABSENT [None]
  - RESPIRATORY ARREST [None]
